FAERS Safety Report 9778596 (Version 2)
Quarter: 2014Q1

REPORT INFORMATION
  Report Type: Report from Study
  Country: MX (occurrence: MX)
  Receive Date: 20131223
  Receipt Date: 20140108
  Transmission Date: 20141002
  Serious: Yes (Other)
  Sender: FDA-Public Use
  Company Number: MX-009507513-1312MEX009989

PATIENT
  Age: 53 Year
  Sex: Male

DRUGS (5)
  1. RALTEGRAVIR POTASSIUM [Suspect]
     Indication: HIV INFECTION
     Dosage: 1200 MG
     Route: 048
     Dates: start: 20130816
  2. RALTEGRAVIR POTASSIUM [Suspect]
     Dosage: 1600 MG
     Route: 048
     Dates: start: 20130823
  3. RITONAVIR [Suspect]
     Indication: HIV INFECTION
     Dosage: UNK
  4. TENOFOVIR [Suspect]
     Indication: HIV INFECTION
     Dosage: UNK
  5. ATAZANAVIR [Suspect]
     Indication: HIV INFECTION
     Dosage: UNK

REACTIONS (1)
  - Overdose [Recovered/Resolved]
